FAERS Safety Report 8102427-3 (Version None)
Quarter: 2012Q1

REPORT INFORMATION
  Report Type: 
  Country: None (occurrence: None)
  Receive Date: 20120131
  Receipt Date: 20120131
  Transmission Date: 20120608
  Serious: Yes (Other)
  Sender: FDA-Public Use
  Company Number: None

PATIENT
  Sex: Male
  Weight: 61.2356 kg

DRUGS (2)
  1. LIPITOR [Suspect]
     Indication: GASTROOESOPHAGEAL REFLUX DISEASE
     Dates: start: 20020101, end: 20060101
  2. SIMVASTATIN [Suspect]
     Indication: GASTROOESOPHAGEAL REFLUX DISEASE
     Dosage: 20 MG ONE A DAY
     Dates: start: 20060101, end: 20120101

REACTIONS (3)
  - BACK PAIN [None]
  - NECK PAIN [None]
  - MUSCULOSKELETAL PAIN [None]
